FAERS Safety Report 7191350-7 (Version None)
Quarter: 2010Q4

REPORT INFORMATION
  Report Type: 
  Country: None (occurrence: None)
  Receive Date: 20101223
  Receipt Date: 20101216
  Transmission Date: 20110411
  Serious: Yes (Life-Threatening, Hospitalization, Other)
  Sender: FDA-Public Use
  Company Number: GB-ROCHE-672926

PATIENT
  Sex: Female

DRUGS (1)
  1. TAMIFLU [Suspect]
     Dosage: RECEIVED 3 OUT OF 10 TABLETS
     Route: 065

REACTIONS (10)
  - BLINDNESS [None]
  - BLISTER [None]
  - ENTROPION [None]
  - EYE INFECTION [None]
  - HYPERSENSITIVITY [None]
  - INSOMNIA [None]
  - RASH [None]
  - STEVENS-JOHNSON SYNDROME [None]
  - TOXIC EPIDERMAL NECROLYSIS [None]
  - WEIGHT DECREASED [None]
